FAERS Safety Report 5348524-7 (Version None)
Quarter: 2007Q2

REPORT INFORMATION
  Report Type: 
  Country: None (occurrence: None)
  Receive Date: 20070605
  Receipt Date: 20070523
  Transmission Date: 20071010
  Serious: Yes (Hospitalization)
  Sender: FDA-Public Use
  Company Number: B0473253A

PATIENT
  Age: 73 Year
  Sex: Female

DRUGS (4)
  1. PAROXETINE HCL [Suspect]
  2. MEMANTINE HCL [Suspect]
     Indication: DEMENTIA ALZHEIMER'S TYPE
  3. QUETIAPINE [Concomitant]
  4. VITAMIN E [Concomitant]

REACTIONS (4)
  - AGITATION [None]
  - DRUG INTERACTION [None]
  - GAIT DISTURBANCE [None]
  - HALLUCINATION, VISUAL [None]
